FAERS Safety Report 6938597-X (Version None)
Quarter: 2010Q3

REPORT INFORMATION
  Report Type: 
  Country: None (occurrence: None)
  Receive Date: 20100824
  Receipt Date: 20100811
  Transmission Date: 20110219
  Serious: Yes (Other)
  Sender: FDA-Public Use
  Company Number: US-SANOFI-AVENTIS-2010SA048680

PATIENT
  Age: 70 Year
  Sex: Female

DRUGS (5)
  1. MULTAQ [Suspect]
     Indication: ATRIAL FIBRILLATION
     Route: 048
     Dates: start: 20100521, end: 20100609
  2. BISOPROLOL [Concomitant]
  3. WARFARIN [Concomitant]
  4. ADVAIR DISKUS 100/50 [Concomitant]
     Dosage: ONE PUFF TWICE DAILY
  5. ALBUTEROL [Concomitant]

REACTIONS (1)
  - ATRIAL FIBRILLATION [None]
